FAERS Safety Report 25380377 (Version 1)
Quarter: 2025Q2

REPORT INFORMATION
  Report Type: Spontaneous
  Country: BR (occurrence: BR)
  Receive Date: 20250530
  Receipt Date: 20250530
  Transmission Date: 20250716
  Serious: Yes (Other)
  Sender: BIOMARIN
  Company Number: BR-SA-2025SA152597

PATIENT

DRUGS (1)
  1. ALDURAZYME [Suspect]
     Active Substance: LARONIDASE
     Indication: Product used for unknown indication
     Route: 042

REACTIONS (8)
  - Immunodeficiency [Recovering/Resolving]
  - Respiratory tract infection [Recovering/Resolving]
  - Periorbital oedema [Recovering/Resolving]
  - Influenza like illness [Recovering/Resolving]
  - Fluid retention [Recovering/Resolving]
  - Face oedema [Recovering/Resolving]
  - Product preparation issue [Unknown]
  - Incorrect product administration duration [Unknown]
